FAERS Safety Report 14325229 (Version 1)
Quarter: 2017Q4

REPORT INFORMATION
  Report Type: Spontaneous
  Country: US (occurrence: US)
  Receive Date: 20171226
  Receipt Date: 20171226
  Transmission Date: 20180321
  Serious: Yes (Hospitalization)
  Sender: FDA-Public Use
  Company Number: US-DSJP-DSU-2017-138535

PATIENT

DRUGS (1)
  1. BENICAR HCT [Suspect]
     Active Substance: HYDROCHLOROTHIAZIDE\OLMESARTAN MEDOXOMIL
     Indication: HYPERTENSION
     Dosage: 40/12.5MG, QD
     Route: 048
     Dates: start: 20130710, end: 20170823

REACTIONS (3)
  - Sprue-like enteropathy [Recovering/Resolving]
  - Diverticulitis [Unknown]
  - Diverticulum intestinal [Unknown]

NARRATIVE: CASE EVENT DATE: 201708
